FAERS Safety Report 5578911-3 (Version None)
Quarter: 2007Q4

REPORT INFORMATION
  Report Type: 
  Country: None (occurrence: None)
  Receive Date: 20071228
  Receipt Date: 20071212
  Transmission Date: 20080405
  Serious: Yes (Other)
  Sender: FDA-Public Use
  Company Number: FACT0700244

PATIENT
  Age: 49 Year
  Sex: Female

DRUGS (5)
  1. FACTIVE [Suspect]
     Indication: DRUG USE FOR UNKNOWN INDICATION
     Dates: start: 20071101, end: 20071117
  2. SYNTHROID [Concomitant]
  3. NADOLOL [Concomitant]
  4. ATIVAN [Concomitant]
  5. ALBUTEROL [Concomitant]

REACTIONS (7)
  - CONSTIPATION [None]
  - DRUG HYPERSENSITIVITY [None]
  - DYSPEPSIA [None]
  - DYSPHONIA [None]
  - STEVENS-JOHNSON SYNDROME [None]
  - TONGUE BLISTERING [None]
  - UPPER RESPIRATORY TRACT INFECTION [None]
